FAERS Safety Report 16307340 (Version 2)
Quarter: 2019Q2

REPORT INFORMATION
  Report Type: Spontaneous
  Country: US (occurrence: US)
  Receive Date: 20190514
  Receipt Date: 20190523
  Transmission Date: 20190711
  Serious: No
  Sender: FDA-Public Use
  Company Number: US-009507513-1905USA000065

PATIENT
  Age: 57 Year

DRUGS (1)
  1. DULERA [Suspect]
     Active Substance: FORMOTEROL FUMARATE DIHYDRATE\MOMETASONE FUROATE
     Route: 055

REACTIONS (3)
  - No adverse event [Unknown]
  - Product quality issue [Unknown]
  - Poor quality device used [Unknown]

NARRATIVE: CASE EVENT DATE: 201904
